FAERS Safety Report 16722393 (Version 1)
Quarter: 2019Q3

REPORT INFORMATION
  Report Type: Spontaneous
  Country: GB (occurrence: GB)
  Receive Date: 20190820
  Receipt Date: 20190820
  Transmission Date: 20191005
  Serious: Yes (Other)
  Sender: FDA-Public Use
  Company Number: GB-009507513-1908GBR007486

PATIENT
  Age: 22 Year
  Sex: Female
  Weight: 59 kg

DRUGS (8)
  1. OMEPRAZOLE. [Concomitant]
     Active Substance: OMEPRAZOLE
     Indication: GASTRIC DISORDER
     Dosage: 2 DOSAGE FORM, QD
     Dates: start: 20181102
  2. LANTUS [Concomitant]
     Active Substance: INSULIN GLARGINE
     Dosage: USE AS DIRECTED
     Dates: start: 20180120
  3. MIRTAZAPINE. [Suspect]
     Active Substance: MIRTAZAPINE
     Indication: DEPRESSED MOOD
     Dosage: BEDTIME
     Dates: start: 20190508
  4. NOVORAPID [Concomitant]
     Active Substance: INSULIN ASPART
     Dosage: USE AS DIRECTED
     Dates: start: 20180120
  5. VENLAFAXINE HYDROCHLORIDE. [Concomitant]
     Active Substance: VENLAFAXINE HYDROCHLORIDE
     Indication: DEPRESSED MOOD
     Dosage: 1 DOSAGE FORM, QD
     Dates: start: 20190208
  6. DEXTROSE. [Concomitant]
     Active Substance: DEXTROSE
     Dosage: USE AS DIRECTED
     Dates: start: 20180120
  7. ALBUTEROL. [Concomitant]
     Active Substance: ALBUTEROL
     Dosage: FOUR TIMES A DAY
     Dates: start: 20180120
  8. MICROGYNON [Concomitant]
     Active Substance: ETHINYL ESTRADIOL\LEVONORGESTREL ACETATE
     Dosage: AS DIRECTED
     Dates: start: 20180120

REACTIONS (3)
  - Myalgia [Unknown]
  - Arthralgia [Unknown]
  - Oedema peripheral [Unknown]

NARRATIVE: CASE EVENT DATE: 20190530
